FAERS Safety Report 26086334 (Version 1)
Quarter: 2025Q4

REPORT INFORMATION
  Report Type: Report from Study
  Country: US (occurrence: US)
  Receive Date: 20251125
  Receipt Date: 20251125
  Transmission Date: 20260118
  Serious: Yes (Other)
  Sender: ABBVIE
  Company Number: US-ABBVIE-5175553

PATIENT
  Age: 59 Year
  Sex: Female

DRUGS (1)
  1. RINVOQ [Suspect]
     Active Substance: UPADACITINIB
     Indication: Rheumatoid arthritis
     Route: 048
     Dates: start: 20200629, end: 202304

REACTIONS (5)
  - Surgery [Unknown]
  - Pain [Not Recovered/Not Resolved]
  - Allergy to metals [Unknown]
  - Abdominal discomfort [Unknown]
  - Bone disorder [Unknown]

NARRATIVE: CASE EVENT DATE: 20200629
